FAERS Safety Report 6248106-9 (Version None)
Quarter: 2009Q2

REPORT INFORMATION
  Report Type: 
  Country: None (occurrence: None)
  Receive Date: 20090624
  Receipt Date: 20090624
  Transmission Date: 20091009
  Serious: Yes (Life-Threatening, Hospitalization, Other)
  Sender: FDA-Public Use
  Company Number: None

PATIENT
  Sex: Female
  Weight: 47.6277 kg

DRUGS (1)
  1. GEODON [Suspect]
     Indication: PANIC DISORDER
     Dosage: 80MG TWICE A DAY ORAL
     Route: 048
     Dates: start: 20080201, end: 20081101

REACTIONS (5)
  - EXCESSIVE EYE BLINKING [None]
  - LIP DISORDER [None]
  - MOVEMENT DISORDER [None]
  - PROTRUSION TONGUE [None]
  - TARDIVE DYSKINESIA [None]
